FAERS Safety Report 8996907 (Version 1)
Quarter: 2013Q1

REPORT INFORMATION
  Report Type: Spontaneous
  Country: GB (occurrence: GB)
  Receive Date: 20130104
  Receipt Date: 20130104
  Transmission Date: 20140127
  Serious: Yes (Other)
  Sender: FDA-Public Use
  Company Number: GB-PFIZER INC-2013000897

PATIENT
  Age: 74 Year
  Sex: Male
  Weight: 62 kg

DRUGS (10)
  1. DOXAZOSIN MESILATE [Suspect]
     Dosage: UNK
     Dates: start: 20121122
  2. RAMIPRIL [Concomitant]
     Dates: start: 20120905
  3. AMLODIPINE [Concomitant]
     Dates: start: 20120905
  4. CLOPIDOGREL [Concomitant]
     Dates: start: 20120905
  5. BENDROFLUMETHIAZIDE [Concomitant]
     Dates: start: 20120905
  6. GLICLAZIDE [Concomitant]
     Dates: start: 20120815
  7. ATORVASTATIN [Concomitant]
     Dates: start: 20120828
  8. THIAMINE [Concomitant]
     Dates: start: 20120828
  9. VITAMIN B COMPLEX [Concomitant]
     Dates: start: 20120903
  10. CETRABEN [Concomitant]
     Dates: start: 20121105, end: 20121211

REACTIONS (2)
  - Cough [Recovered/Resolved]
  - Swelling face [Recovered/Resolved]
